FAERS Safety Report 7712850-4 (Version None)
Quarter: 2011Q3

REPORT INFORMATION
  Report Type: 
  Country: None (occurrence: None)
  Receive Date: 20110826
  Receipt Date: 20110815
  Transmission Date: 20111222
  Serious: Yes (Other)
  Sender: FDA-Public Use
  Company Number: PHFR2011GB04830

PATIENT
  Sex: Male

DRUGS (1)
  1. TEGRETOL-XR [Suspect]

REACTIONS (1)
  - CONVULSION [None]
